FAERS Safety Report 4537034-2 (Version None)
Quarter: 2004Q4

REPORT INFORMATION
  Report Type: 
  Country: None (occurrence: None)
  Receive Date: 20041220
  Receipt Date: 20041207
  Transmission Date: 20050328
  Serious: Yes (Disabling)
  Sender: FDA-Public Use
  Company Number: HQWYE788007DEC04

PATIENT
  Age: 55 Year
  Sex: Male

DRUGS (9)
  1. AVLOCARDYL          (PROPRANOLOL HYDROCHLORIDE) [Suspect]
     Indication: HYPERTENSION
     Dosage: ORAL
     Route: 048
  2. ENGERIX-B [Suspect]
     Indication: IMMUNISATION
     Dosage: IM
     Route: 030
     Dates: start: 19950901, end: 19950901
  3. ENGERIX-B [Suspect]
     Indication: IMMUNISATION
     Dosage: IM
     Route: 030
     Dates: start: 19951001, end: 19951001
  4. PLAVIX [Suspect]
     Indication: THROMBOSIS PROPHYLAXIS
     Dosage: ORAL
     Route: 048
     Dates: start: 19950101
  5. TETAVAX   (TETANUS ANTITOXIN,) [Suspect]
     Indication: IMMUNISATION
     Dosage: IM
     Route: 030
     Dates: start: 19820210, end: 19820210
  6. TETAVAX   (TETANUS ANTITOXIN,) [Suspect]
     Indication: IMMUNISATION
     Dosage: IM
     Route: 030
     Dates: start: 19820309, end: 19820309
  7. TETAVAX   (TETANUS ANTITOXIN,) [Suspect]
     Indication: IMMUNISATION
     Dosage: IM
     Route: 030
     Dates: start: 19830420, end: 19830420
  8. TETAVAX   (TETANUS ANTITOXIN,) [Suspect]
     Indication: IMMUNISATION
     Dosage: IM
     Route: 030
     Dates: start: 19930813, end: 19930813
  9. TOCOPHEROX [Suspect]
     Indication: HYPERCHOLESTEROLAEMIA
     Dosage: 500 MG ORAL
     Route: 048

REACTIONS (2)
  - MYOFASCITIS [None]
  - VITAMIN B12 DECREASED [None]
